FAERS Safety Report 8082953-6 (Version None)
Quarter: 2012Q1

REPORT INFORMATION
  Report Type: 
  Country: None (occurrence: None)
  Receive Date: 20120127
  Receipt Date: 20110309
  Transmission Date: 20120608
  Serious: No
  Sender: FDA-Public Use
  Company Number: US-ABBOTT-11P-163-0710285-00

PATIENT
  Age: 54 Year
  Sex: Female

DRUGS (3)
  1. JUNEL 1.5/30 [Concomitant]
     Indication: CONTRACEPTION
  2. HUMIRA [Suspect]
     Indication: RHEUMATOID ARTHRITIS
     Dates: start: 20100901
  3. GENERIC ALLEGRA D [Concomitant]
     Indication: PRODUCT USED FOR UNKNOWN INDICATION

REACTIONS (4)
  - RASH ERYTHEMATOUS [None]
  - RASH [None]
  - DRY SKIN [None]
  - EXFOLIATIVE RASH [None]
